FAERS Safety Report 5191640-3 (Version None)
Quarter: 2006Q4

REPORT INFORMATION
  Report Type: 
  Country: None (occurrence: None)
  Receive Date: 20061219
  Receipt Date: 20061206
  Transmission Date: 20070319
  Serious: Yes (Other)
  Sender: FDA-Public Use
  Company Number: 2006150630

PATIENT
  Age: 51 Year
  Sex: Male

DRUGS (1)
  1. VIAGRA [Suspect]
     Dosage: (50 MG, AS NECESSARY)
     Dates: start: 20040101

REACTIONS (1)
  - VISUAL ACUITY REDUCED [None]
